FAERS Safety Report 7048940-1 (Version None)
Quarter: 2010Q4

REPORT INFORMATION
  Report Type: 
  Country: None (occurrence: None)
  Receive Date: 20101018
  Receipt Date: 20101005
  Transmission Date: 20110411
  Serious: Yes (Other)
  Sender: FDA-Public Use
  Company Number: PHHY2010NL66288

PATIENT
  Sex: Female
  Weight: 24 kg

DRUGS (1)
  1. RITALIN [Suspect]
     Indication: ATTENTION DEFICIT/HYPERACTIVITY DISORDER
     Dosage: 5 TO 10 MG
     Dates: start: 20100501, end: 20100801

REACTIONS (1)
  - LOSS OF CONSCIOUSNESS [None]
